FAERS Safety Report 7282398-2 (Version None)
Quarter: 2011Q1

REPORT INFORMATION
  Report Type: 
  Country: None (occurrence: None)
  Receive Date: 20110209
  Receipt Date: 20110128
  Transmission Date: 20110831
  Serious: Yes (Death, Life-Threatening, Hospitalization)
  Sender: FDA-Public Use
  Company Number: US-CELGENEUS-163-21880-10121083

PATIENT
  Sex: Male

DRUGS (5)
  1. OXYCODONE HCL [Concomitant]
     Indication: PAIN
     Dosage: 5-10MG
     Route: 048
  2. ACYCLOVIR [Concomitant]
     Indication: PROPHYLAXIS
     Route: 065
  3. BIAXIN [Concomitant]
     Route: 065
  4. REVLIMID [Suspect]
     Indication: MULTIPLE MYELOMA
     Route: 048
     Dates: start: 20100630, end: 20101202
  5. ATIVAN [Concomitant]
     Indication: NAUSEA
     Route: 048

REACTIONS (2)
  - DRUG INEFFECTIVE [None]
  - LEUKAEMIA PLASMACYTIC [None]
